FAERS Safety Report 5563672-4 (Version None)
Quarter: 2007Q4

REPORT INFORMATION
  Report Type: 
  Country: None (occurrence: None)
  Receive Date: 20071217
  Receipt Date: 20070730
  Transmission Date: 20080405
  Serious: No
  Sender: FDA-Public Use
  Company Number: US-ASTRAZENECA-2007UW18255

PATIENT
  Age: 14417 Day
  Sex: Male
  Weight: 81.6 kg

DRUGS (3)
  1. CRESTOR [Suspect]
     Indication: HYPERCHOLESTEROLAEMIA
     Route: 048
     Dates: start: 20070725
  2. METFORMIN HCL [Concomitant]
  3. ASPIRIN [Concomitant]

REACTIONS (3)
  - ASTHENIA [None]
  - COLD SWEAT [None]
  - STOMACH DISCOMFORT [None]
